FAERS Safety Report 17251062 (Version 5)
Quarter: 2020Q1

REPORT INFORMATION
  Report Type: Spontaneous
  Country: SE (occurrence: SE)
  Receive Date: 20200109
  Receipt Date: 20200212
  Transmission Date: 20200409
  Serious: Yes (Hospitalization)
  Sender: FDA-Public Use
  Company Number: SE-MYLANLABS-2020M1001944

PATIENT
  Age: 21 Year
  Sex: Female

DRUGS (4)
  1. VOXRA [Suspect]
     Active Substance: BUPROPION HYDROCHLORIDE
     Indication: PRODUCT USED FOR UNKNOWN INDICATION
     Dosage: 300 MILLIGRAM
     Dates: start: 20181130, end: 20181130
  2. GABAPENTIN. [Suspect]
     Active Substance: GABAPENTIN
     Indication: PRODUCT USED FOR UNKNOWN INDICATION
     Dosage: 300 MILLIGRAM
     Route: 048
     Dates: start: 20181130, end: 20181130
  3. QUETIAPINE. [Suspect]
     Active Substance: QUETIAPINE
     Indication: PRODUCT USED FOR UNKNOWN INDICATION
     Dosage: 50 MG WAS TAKEN THIS NIGHT, NOT TOO MANY
     Route: 048
     Dates: start: 20181130, end: 20181130
  4. LERGIGAN (PROMETHAZINE HYDROCHLORIDE) [Suspect]
     Active Substance: PROMETHAZINE HYDROCHLORIDE
     Indication: PRODUCT USED FOR UNKNOWN INDICATION
     Dosage: UNCLEAR AMOUNT
     Route: 048
     Dates: start: 20181130, end: 20181130

REACTIONS (9)
  - Intentional self-injury [Unknown]
  - Akathisia [Unknown]
  - Depressed level of consciousness [Unknown]
  - Confusional state [Unknown]
  - Intentional overdose [Unknown]
  - Mydriasis [Unknown]
  - Paranoia [Unknown]
  - Hallucination [Unknown]
  - Lethargy [Unknown]

NARRATIVE: CASE EVENT DATE: 20181130
